FAERS Safety Report 23219865 (Version 1)
Quarter: 2023Q4

REPORT INFORMATION
  Report Type: Spontaneous
  Country: US (occurrence: US)
  Receive Date: 20231122
  Receipt Date: 20231122
  Transmission Date: 20240110
  Serious: No
  Sender: FDA-Public Use
  Company Number: US-AVADEL CNS PHARMACEUTICALS, LLC-2023AVA00168

PATIENT
  Age: 38 Year
  Sex: Female

DRUGS (3)
  1. LUMRYZ [Suspect]
     Active Substance: SODIUM OXYBATE
     Indication: Narcolepsy
     Dosage: 4.5 G, 1X/DAY AT NIGHT
     Dates: start: 20230909
  2. VITAMINS [Concomitant]
     Active Substance: VITAMINS
  3. HERBALS [Concomitant]
     Active Substance: HERBALS

REACTIONS (3)
  - Nervousness [Recovering/Resolving]
  - Initial insomnia [Recovered/Resolved]
  - Insomnia [Not Recovered/Not Resolved]

NARRATIVE: CASE EVENT DATE: 20230909
